FAERS Safety Report 5793298-9 (Version None)
Quarter: 2008Q2

REPORT INFORMATION
  Report Type: 
  Country: None (occurrence: None)
  Receive Date: 20080627
  Receipt Date: 20080618
  Transmission Date: 20081010
  Serious: Yes (Hospitalization)
  Sender: FDA-Public Use
  Company Number: DE-ABBOTT-08P-062-0453937-00

PATIENT
  Sex: Female
  Weight: 72 kg

DRUGS (4)
  1. HUMIRA [Suspect]
     Indication: CROHN'S DISEASE
     Route: 058
     Dates: end: 20080101
  2. HUMIRA [Suspect]
     Dates: start: 20080323
  3. METAMIZOLE [Concomitant]
     Indication: DRUG USE FOR UNKNOWN INDICATION
  4. AZATHIOPRINE [Concomitant]
     Indication: CROHN'S DISEASE
     Dates: start: 20021201

REACTIONS (4)
  - ABSCESS [None]
  - DRUG INTOLERANCE [None]
  - INTESTINAL FISTULA [None]
  - RASH [None]
